FAERS Safety Report 6422159-7 (Version None)
Quarter: 2009Q4

REPORT INFORMATION
  Report Type: 
  Country: None (occurrence: None)
  Receive Date: 20091030
  Receipt Date: 20091023
  Transmission Date: 20100525
  Serious: Yes (Other)
  Sender: FDA-Public Use
  Company Number: GB-TEVA-177840ISR

PATIENT
  Age: 16 Year
  Sex: Male

DRUGS (4)
  1. FLUOXETINE [Suspect]
     Indication: OBSESSIVE-COMPULSIVE DISORDER
     Route: 048
     Dates: start: 19980101, end: 20090101
  2. FLUOXETINE [Interacting]
     Indication: TOURETTE'S DISORDER
     Route: 048
     Dates: start: 20090101
  3. MODAFINIL [Interacting]
     Indication: NARCOLEPSY
     Route: 048
     Dates: start: 20080501
  4. MODAFINIL [Interacting]
     Indication: SOMNOLENCE
     Route: 048

REACTIONS (5)
  - CONDITION AGGRAVATED [None]
  - DRUG INTERACTION [None]
  - OBSESSIVE-COMPULSIVE DISORDER [None]
  - TIC [None]
  - TOURETTE'S DISORDER [None]
